FAERS Safety Report 7095844-4 (Version None)
Quarter: 2010Q4

REPORT INFORMATION
  Report Type: 
  Country: None (occurrence: None)
  Receive Date: 20101109
  Receipt Date: 20101109
  Transmission Date: 20110411
  Serious: No
  Sender: FDA-Public Use
  Company Number: None

PATIENT
  Sex: Male
  Weight: 11 kg

DRUGS (6)
  1. PEG-L- ASPARAGINASE (PEGASPARGASE, ONCOSPAR) [Suspect]
     Dosage: 1300 IU
     Dates: end: 20100302
  2. PREDNISONE [Suspect]
     Dosage: 375 MG
     Dates: end: 20100325
  3. VINCRISTINE SULFATE [Suspect]
     Dosage: 3 MG
     Dates: end: 20100319
  4. CYTARABINE [Suspect]
     Dosage: 30 MG
     Dates: end: 20100226
  5. DAUNORUBICIN [Suspect]
     Dosage: 52 MG
     Dates: end: 20100319
  6. METHOTREXATE [Suspect]
     Dosage: 20 MG
     Dates: end: 20100326

REACTIONS (2)
  - HYPERGLYCAEMIA [None]
  - NEUTROPHIL COUNT ABNORMAL [None]
